FAERS Safety Report 7400240-3 (Version None)
Quarter: 2011Q2

REPORT INFORMATION
  Report Type: 
  Country: None (occurrence: None)
  Receive Date: 20110407
  Receipt Date: 20110328
  Transmission Date: 20111010
  Serious: Yes (Death)
  Sender: FDA-Public Use
  Company Number: IL-ACTELION-A-CH2011-46822

PATIENT
  Age: 73 Year
  Sex: Female

DRUGS (1)
  1. TRACLEER [Suspect]
     Indication: SCLERODERMA
     Dosage: UNK , UNK
     Route: 048

REACTIONS (3)
  - SEPSIS [None]
  - WOUND NECROSIS [None]
  - WOUND INFECTION [None]
